FAERS Safety Report 13884230 (Version 1)
Quarter: 2017Q3

REPORT INFORMATION
  Report Type: Spontaneous
  Country: US (occurrence: US)
  Receive Date: 20170821
  Receipt Date: 20170821
  Transmission Date: 20171127
  Serious: Yes (Hospitalization, Other)
  Sender: FDA-Public Use
  Company Number: US-TEVA-711499USA

PATIENT
  Age: 52 Year
  Sex: Female
  Weight: 59 kg

DRUGS (10)
  1. LEUCOVORIN. [Suspect]
     Active Substance: LEUCOVORIN
     Route: 065
  2. GRANISETRON [Concomitant]
     Active Substance: GRANISETRON
  3. LORAZEPAM. [Concomitant]
     Active Substance: LORAZEPAM
  4. EMEND [Concomitant]
     Active Substance: APREPITANT
  5. ATROPINE. [Concomitant]
     Active Substance: ATROPINE
  6. NEULASTA [Concomitant]
     Active Substance: PEGFILGRASTIM
  7. GABAPENTIN. [Concomitant]
     Active Substance: GABAPENTIN
  8. 5FU [Suspect]
     Active Substance: FLUOROURACIL
     Route: 065
  9. IRINOTECAN [Suspect]
     Active Substance: IRINOTECAN
     Route: 065
  10. OXALIPLATIN. [Suspect]
     Active Substance: OXALIPLATIN
     Indication: PANCREATIC CARCINOMA
     Dosage: 5 MG/ML, 50 MG
     Dates: start: 20161017, end: 20161017

REACTIONS (1)
  - Pancreatitis [Recovered/Resolved]

NARRATIVE: CASE EVENT DATE: 20161022
